FAERS Safety Report 15191137 (Version 1)
Quarter: 2018Q3

REPORT INFORMATION
  Report Type: Spontaneous
  Country: EG (occurrence: EG)
  Receive Date: 20180724
  Receipt Date: 20180724
  Transmission Date: 20181010
  Serious: Yes (Death, Hospitalization, Other)
  Sender: FDA-Public Use
  Company Number: EG-SA-2018SA202059

PATIENT
  Age: 3 Year
  Sex: Male
  Weight: 9 kg

DRUGS (1)
  1. CEREZYME [Suspect]
     Active Substance: IMIGLUCERASE
     Indication: GAUCHER^S DISEASE TYPE III
     Dosage: 60, QOW
     Route: 041
     Dates: start: 201803, end: 20180623

REACTIONS (2)
  - Pneumonia [Fatal]
  - Aspiration [Fatal]
